FAERS Safety Report 17557687 (Version 1)
Quarter: 2020Q1

REPORT INFORMATION
  Report Type: Spontaneous
  Country: DE (occurrence: DE)
  Receive Date: 20200318
  Receipt Date: 20200318
  Transmission Date: 20200409
  Serious: Yes (Hospitalization)
  Sender: FDA-Public Use
  Company Number: DE-TEVA-2020-DE-1202817

PATIENT
  Age: 79 Year
  Sex: Male

DRUGS (1)
  1. TRAMADOL. [Suspect]
     Active Substance: TRAMADOL
     Dosage: 30-30-30-0, DROPS
     Route: 065

REACTIONS (2)
  - Dizziness [Recovered/Resolved]
  - Fall [Recovered/Resolved]
